FAERS Safety Report 4340592-4 (Version None)
Quarter: 2004Q2

REPORT INFORMATION
  Report Type: 
  Country: None (occurrence: None)
  Receive Date: 20040416
  Receipt Date: 20040416
  Transmission Date: 20050107
  Serious: Yes (Hospitalization, Other)
  Sender: FDA-Public Use
  Company Number: None

PATIENT
  Age: 49 Year
  Sex: Female
  Weight: 108.8633 kg

DRUGS (1)
  1. GLIPIZIDE [Suspect]
     Indication: DIABETES MELLITUS
     Dosage: 1 TAB BY MOUTH ORAL
     Route: 048
     Dates: start: 20040307

REACTIONS (6)
  - DYSPEPSIA [None]
  - MALAISE [None]
  - MARKEDLY REDUCED DIETARY INTAKE [None]
  - NAUSEA [None]
  - VERTIGO [None]
  - VOMITING [None]
